FAERS Safety Report 6376823-9 (Version None)
Quarter: 2009Q3

REPORT INFORMATION
  Report Type: 
  Country: None (occurrence: None)
  Receive Date: 20090924
  Receipt Date: 20090924
  Transmission Date: 20100115
  Serious: Yes (Hospitalization, Disabling)
  Sender: FDA-Public Use
  Company Number: None

PATIENT
  Sex: Female
  Weight: 69.4003 kg

DRUGS (1)
  1. LEVAQUIN [Suspect]
     Indication: SINUSITIS
     Dosage: 1 TABLET @ DAY
     Dates: start: 20090324, end: 20090407

REACTIONS (4)
  - APPARENT DEATH [None]
  - ARTHRALGIA [None]
  - JOINT CREPITATION [None]
  - PAIN IN EXTREMITY [None]
